FAERS Safety Report 13767879 (Version 3)
Quarter: 2017Q3

REPORT INFORMATION
  Report Type: Spontaneous
  Country: GB (occurrence: GB)
  Receive Date: 20170719
  Receipt Date: 20170728
  Transmission Date: 20171127
  Serious: Yes (Hospitalization)
  Sender: FDA-Public Use
  Company Number: GB-SA-2017SA126927

PATIENT
  Age: 0 Day
  Sex: Male
  Weight: 3.9 kg

DRUGS (4)
  1. ASPIRIN. [Concomitant]
     Active Substance: ASPIRIN
     Route: 064
  2. NOVORAPID [Suspect]
     Active Substance: INSULIN ASPART
     Indication: FOETAL EXPOSURE DURING PREGNANCY
     Route: 064
     Dates: start: 20140201, end: 20141014
  3. LANTUS [Suspect]
     Active Substance: INSULIN GLARGINE
     Indication: FOETAL EXPOSURE DURING PREGNANCY
     Route: 064
     Dates: start: 20140201, end: 20141014
  4. FOLIC ACID. [Concomitant]
     Active Substance: FOLIC ACID
     Route: 064
     Dates: start: 20140201, end: 20141014

REACTIONS (6)
  - Hypoglycaemia neonatal [Recovered/Resolved]
  - Atrial septal defect [Recovered/Resolved]
  - Polycythaemia neonatorum [Recovered/Resolved]
  - Neonatal respiratory distress syndrome [Recovered/Resolved]
  - Jaundice neonatal [Recovered/Resolved]
  - Foetal exposure during pregnancy [Unknown]

NARRATIVE: CASE EVENT DATE: 20141014
